FAERS Safety Report 14948568 (Version 2)
Quarter: 2018Q2

REPORT INFORMATION
  Report Type: Report from Study
  Country: CZ (occurrence: CZ)
  Receive Date: 20180529
  Receipt Date: 20180531
  Transmission Date: 20180711
  Serious: Yes (Hospitalization, Disabling)
  Sender: FDA-Public Use
  Company Number: CZ-PFIZER INC-2018211939

PATIENT
  Age: 34 Year
  Sex: Male
  Weight: 61 kg

DRUGS (12)
  1. IRINOTECAN HCL [Suspect]
     Active Substance: IRINOTECAN HYDROCHLORIDE
     Dosage: 320 MG, CYCLIC
     Route: 041
     Dates: start: 20150402, end: 20150402
  2. CALCIUM FOLINATE [Suspect]
     Active Substance: LEUCOVORIN CALCIUM
     Indication: COLORECTAL CANCER METASTATIC
     Dosage: 720 MG, CYCLIC
     Route: 041
     Dates: start: 20150303, end: 20150303
  3. CALCIUM FOLINATE [Suspect]
     Active Substance: LEUCOVORIN CALCIUM
     Dosage: 720 MG, CYCLIC
     Route: 041
     Dates: start: 20150402, end: 20150402
  4. IRINOTECAN HCL [Suspect]
     Active Substance: IRINOTECAN HYDROCHLORIDE
     Indication: COLORECTAL CANCER METASTATIC
     Dosage: 320 MG, CYCLIC
     Route: 041
     Dates: start: 20150303, end: 20150303
  5. DEGAN [Concomitant]
     Active Substance: METOCLOPRAMIDE HYDROCHLORIDE
     Indication: PROPHYLAXIS
     Dosage: UNK
     Route: 065
     Dates: start: 20150402, end: 20150404
  6. AFLIBERCEPT [Suspect]
     Active Substance: AFLIBERCEPT
     Indication: COLORECTAL CANCER METASTATIC
     Dosage: 240 MG, CYCLIC
     Route: 041
     Dates: start: 20150402, end: 20150402
  7. FLUOROURACIL. [Suspect]
     Active Substance: FLUOROURACIL
     Dosage: 2140 MG, CYCLIC
     Route: 041
     Dates: start: 20150303, end: 20150303
  8. FLUOROURACIL. [Suspect]
     Active Substance: FLUOROURACIL
     Dosage: 2140 MG, CYCLIC
     Route: 041
     Dates: start: 20150402, end: 20150402
  9. HELICID /00661201/ [Concomitant]
     Dosage: UNK
     Route: 065
     Dates: start: 20150303
  10. FLUOROURACIL. [Suspect]
     Active Substance: FLUOROURACIL
     Indication: COLORECTAL CANCER METASTATIC
     Dosage: 1440 MG, CYCLIC
     Route: 040
     Dates: start: 20150303, end: 20150303
  11. FLUOROURACIL. [Suspect]
     Active Substance: FLUOROURACIL
     Dosage: 1440 MG, CYCLIC
     Route: 040
     Dates: start: 20150402, end: 20150402
  12. EMEND [Concomitant]
     Active Substance: APREPITANT
     Indication: PROPHYLAXIS
     Dosage: UNK
     Route: 065
     Dates: start: 20150402, end: 20150404

REACTIONS (2)
  - Pulmonary embolism [Not Recovered/Not Resolved]
  - Vomiting [Recovered/Resolved]

NARRATIVE: CASE EVENT DATE: 20150408
